FAERS Safety Report 4408557-1 (Version None)
Quarter: 2004Q3

REPORT INFORMATION
  Report Type: 
  Country: None (occurrence: None)
  Receive Date: 20040726
  Receipt Date: 20040517
  Transmission Date: 20050211
  Serious: Yes (Hospitalization)
  Sender: FDA-Public Use
  Company Number: 2004UW10433

PATIENT
  Age: 65 Year
  Sex: Female
  Weight: 87.9978 kg

DRUGS (9)
  1. CRESTOR [Suspect]
     Indication: CORONARY ARTERY DISEASE
     Dosage: 40 MG DAILY PO
     Route: 048
     Dates: start: 20040101, end: 20040417
  2. CRESTOR [Suspect]
     Indication: HYPERLIPIDAEMIA
     Dosage: 40 MG DAILY PO
     Route: 048
     Dates: start: 20040101, end: 20040417
  3. AVANDAMET [Concomitant]
  4. SYNTHROID [Concomitant]
  5. TOPROL-XL [Concomitant]
  6. ALTACE [Concomitant]
  7. NOVOLOG [Concomitant]
  8. GEMFIBROZIL [Concomitant]
  9. LIPITOR [Concomitant]

REACTIONS (1)
  - RHABDOMYOLYSIS [None]
